FAERS Safety Report 21269267 (Version 1)
Quarter: 2022Q3

REPORT INFORMATION
  Report Type: Spontaneous
  Country: US (occurrence: None)
  Receive Date: 20220829
  Receipt Date: 20220829
  Transmission Date: 20221026
  Serious: No
  Sender: FDA-Public Use
  Company Number: None

PATIENT
  Sex: Female

DRUGS (1)
  1. CUVITRU [Suspect]
     Active Substance: HUMAN IMMUNOGLOBULIN G
     Indication: Immunodeficiency
     Dosage: INFUSE 2GM (10ML) SUBCUTANEOUSLY ON WEEK 1 + THEN 4GM (20ML) SUBCUTANEOUSLY ON WEEK 2 + THEN 6GM (
     Route: 058
     Dates: start: 202207

REACTIONS (2)
  - Drug hypersensitivity [None]
  - Infusion related reaction [None]
